FAERS Safety Report 20480367 (Version 1)
Quarter: 2022Q1

REPORT INFORMATION
  Report Type: Spontaneous
  Country: US (occurrence: None)
  Receive Date: 20220216
  Receipt Date: 20220216
  Transmission Date: 20220423
  Serious: Yes (Other)
  Sender: FDA-Public Use
  Company Number: 2022A058913

PATIENT
  Age: 22696 Day
  Sex: Male
  Weight: 51.7 kg

DRUGS (7)
  1. IMFINZI [Suspect]
     Active Substance: DURVALUMAB
     Indication: Lung carcinoma cell type unspecified stage III
     Dosage: 1500 MG
     Route: 041
     Dates: start: 20210716
  2. IMFINZI [Suspect]
     Active Substance: DURVALUMAB
     Indication: Lung carcinoma cell type unspecified stage III
     Dosage: 1500 MG
     Route: 041
     Dates: start: 20210816
  3. IMFINZI [Suspect]
     Active Substance: DURVALUMAB
     Indication: Lung carcinoma cell type unspecified stage III
     Dosage: 1500 MG
     Route: 041
     Dates: start: 20210913
  4. IMFINZI [Suspect]
     Active Substance: DURVALUMAB
     Indication: Lung carcinoma cell type unspecified stage III
     Dosage: 1500 MG
     Route: 041
     Dates: start: 20211116
  5. IMFINZI [Suspect]
     Active Substance: DURVALUMAB
     Indication: Lung carcinoma cell type unspecified stage III
     Route: 041
     Dates: start: 20211018
  6. INFLIXIMAB [Concomitant]
     Active Substance: INFLIXIMAB
  7. ANTI-TNF [Concomitant]

REACTIONS (2)
  - Diarrhoea [Recovered/Resolved]
  - Autoimmune colitis [Recovered/Resolved]

NARRATIVE: CASE EVENT DATE: 20211018
